FAERS Safety Report 14769151 (Version 1)
Quarter: 2018Q2

REPORT INFORMATION
  Report Type: Spontaneous
  Country: ES (occurrence: ES)
  Receive Date: 20180417
  Receipt Date: 20180417
  Transmission Date: 20180711
  Serious: Yes (Hospitalization)
  Sender: FDA-Public Use
  Company Number: ES-B.I. PHARMACEUTICALS,INC./RIDGEFIELD-2018-12-001357

PATIENT
  Age: 72 Year
  Sex: Male

DRUGS (2)
  1. COLCHICINA SEID [Suspect]
     Active Substance: COLCHICINE
     Indication: GOUTY ARTHRITIS
     Route: 048
     Dates: start: 20170101, end: 20180320
  2. TRAJENTA [Suspect]
     Active Substance: LINAGLIPTIN
     Indication: TYPE 2 DIABETES MELLITUS
     Route: 048
     Dates: start: 20170804, end: 20180316

REACTIONS (2)
  - Renal failure [Recovering/Resolving]
  - Diarrhoea [Recovering/Resolving]

NARRATIVE: CASE EVENT DATE: 201801
